FAERS Safety Report 7268205-2 (Version None)
Quarter: 2011Q1

REPORT INFORMATION
  Report Type: 
  Country: None (occurrence: None)
  Receive Date: 20110201
  Receipt Date: 20110113
  Transmission Date: 20110831
  Serious: No
  Sender: FDA-Public Use
  Company Number: US-PFIZER INC-US-WYE-H12018409

PATIENT
  Sex: Female

DRUGS (5)
  1. PREMARIN [Suspect]
     Dosage: 1.3 MG, 1X/DAY
     Route: 048
     Dates: start: 19960101, end: 20050101
  2. PREMARIN [Suspect]
     Dosage: 0.3 MG, 1X/DAY
     Route: 048
     Dates: start: 20090901
  3. LIPITOR [Suspect]
     Dosage: UNK
  4. PREMARIN [Suspect]
     Indication: MENOPAUSAL SYMPTOMS
     Dosage: 0.6 MG, 1X/DAY
     Route: 048
     Dates: start: 19860101, end: 19960101
  5. PREMARIN [Suspect]
     Dosage: 0.6 MG, 1X/DAY
     Route: 048
     Dates: start: 20050101, end: 20090401

REACTIONS (1)
  - WITHDRAWAL SYNDROME [None]
